FAERS Safety Report 11014054 (Version 2)
Quarter: 2015Q2

REPORT INFORMATION
  Report Type: Spontaneous
  Country: US (occurrence: US)
  Receive Date: 20150412
  Receipt Date: 20150525
  Transmission Date: 20150821
  Serious: No
  Sender: FDA-Public Use
  Company Number: US-JNJFOC-20140319049

PATIENT
  Age: 40 Year
  Sex: Female
  Weight: 77.11 kg

DRUGS (4)
  1. PERCOCET [Concomitant]
     Active Substance: ACETAMINOPHEN\OXYCODONE HYDROCHLORIDE
     Indication: PAIN
     Dosage: AS NEEDED
     Route: 048
  2. ELMIRON [Suspect]
     Active Substance: PENTOSAN POLYSULFATE SODIUM
     Indication: PELVIC FLOOR MUSCLE WEAKNESS
     Route: 048
     Dates: start: 20140327, end: 20140506
  3. ELMIRON [Suspect]
     Active Substance: PENTOSAN POLYSULFATE SODIUM
     Indication: CYSTITIS INTERSTITIAL
     Route: 048
     Dates: start: 20140327, end: 20140506
  4. ELAVIL [Suspect]
     Active Substance: AMITRIPTYLINE HYDROCHLORIDE
     Indication: PAIN
     Route: 065
     Dates: start: 2014

REACTIONS (8)
  - Stomatitis [Recovering/Resolving]
  - Drug ineffective [Not Recovered/Not Resolved]
  - Abdominal pain upper [Recovered/Resolved]
  - Nausea [Not Recovered/Not Resolved]
  - Dry mouth [Recovered/Resolved]
  - Alopecia [Not Recovered/Not Resolved]
  - Vomiting [Recovered/Resolved]
  - Cheilitis [Recovering/Resolving]

NARRATIVE: CASE EVENT DATE: 2014
